FAERS Safety Report 11302513 (Version 2)
Quarter: 2015Q3

REPORT INFORMATION
  Report Type: Spontaneous
  Country: IT (occurrence: IT)
  Receive Date: 20150723
  Receipt Date: 20150731
  Transmission Date: 20151125
  Serious: Yes (Other)
  Sender: FDA-Public Use
  Company Number: IT-BAXALTA-2015BLT000504

PATIENT
  Age: 75 Year
  Sex: Female
  Weight: 63 kg

DRUGS (1)
  1. FLEXBUMIN [Suspect]
     Active Substance: ALBUMIN (HUMAN)
     Indication: PARACENTESIS
     Dosage: 50 ML, TOTAL
     Route: 042
     Dates: start: 20150708, end: 20150708

REACTIONS (1)
  - Erythema [Recovered/Resolved]

NARRATIVE: CASE EVENT DATE: 20150708
